FAERS Safety Report 11235820 (Version 1)
Quarter: 2015Q3

REPORT INFORMATION
  Report Type: Spontaneous
  Country: US (occurrence: US)
  Receive Date: 20150702
  Receipt Date: 20150702
  Transmission Date: 20151125
  Serious: Yes (Other)
  Sender: FDA-Public Use
  Company Number: PHEH2015US012654

PATIENT
  Sex: Male
  Weight: 34.84 kg

DRUGS (3)
  1. DEXAMETHASONE. [Concomitant]
     Active Substance: DEXAMETHASONE
     Indication: PLASMA CELL MYELOMA
     Dosage: 4 MG, TAKE 5 TABLETS ON DAYS 1,4,8,11
     Route: 048
     Dates: start: 20150615
  2. VELCADE [Concomitant]
     Active Substance: BORTEZOMIB
     Indication: PLASMA CELL MYELOMA
     Dosage: 1.3 MG, BIW, ON DAYS 1,4,8,11 OF EACH 21 DAY CYCLE
     Route: 042
     Dates: start: 20150615
  3. FARYDAK [Suspect]
     Active Substance: PANOBINOSTAT
     Indication: PLASMA CELL MYELOMA
     Dosage: 20 MG, QOD, M, W, F FOR 2 WEEKS WITH 1 WEEK OFF AND REPEAT
     Route: 048
     Dates: start: 20150615

REACTIONS (1)
  - Diarrhoea [Recovered/Resolved]
